FAERS Safety Report 18159881 (Version 1)
Quarter: 2020Q3

REPORT INFORMATION
  Report Type: Spontaneous
  Country: US (occurrence: US)
  Receive Date: 20200818
  Receipt Date: 20200818
  Transmission Date: 20201103
  Serious: No
  Sender: FDA-Public Use
  Company Number: US-CELLTRION INC.-2020US024475

PATIENT

DRUGS (1)
  1. TRUXIMA [Suspect]
     Active Substance: RITUXIMAB-ABBS
     Indication: HODGKIN^S DISEASE
     Dosage: 862.5 MG D1 Q 21 D X 12
     Dates: start: 20200717

REACTIONS (1)
  - Off label use [Unknown]
